FAERS Safety Report 16792090 (Version 5)
Quarter: 2019Q4

REPORT INFORMATION
  Report Type: Report from Study
  Country: US (occurrence: US)
  Receive Date: 20190910
  Receipt Date: 20191015
  Transmission Date: 20200122
  Serious: Yes (Hospitalization)
  Sender: FDA-Public Use
  Company Number: US-JNJFOC-20190900065

PATIENT
  Age: 5 Year
  Sex: Female
  Weight: 15.3 kg

DRUGS (5)
  1. ZOMACTON [Concomitant]
     Active Substance: SOMATROPIN
  2. IBUPROFEN. [Concomitant]
     Active Substance: IBUPROFEN
  3. INFLIXIMAB, RECOMBINANT [Suspect]
     Active Substance: INFLIXIMAB
     Indication: INFLAMMATORY BOWEL DISEASE
     Route: 042
     Dates: start: 20160706, end: 20170330
  4. ILARIS [Concomitant]
     Active Substance: CANAKINUMAB
     Route: 065
     Dates: start: 20180416
  5. HUMIRA [Concomitant]
     Active Substance: ADALIMUMAB
     Route: 065
     Dates: start: 20170713

REACTIONS (1)
  - Large intestinal stenosis [Recovered/Resolved]

NARRATIVE: CASE EVENT DATE: 20190621
